FAERS Safety Report 4867204-5 (Version None)
Quarter: 2005Q4

REPORT INFORMATION
  Report Type: 
  Country: None (occurrence: None)
  Receive Date: 20051227
  Receipt Date: 20051227
  Transmission Date: 20060501
  Serious: Yes (Hospitalization)
  Sender: FDA-Public Use
  Company Number: None

PATIENT
  Age: 66 Year
  Sex: Male
  Weight: 65.9 kg

DRUGS (11)
  1. LEVAQUIN [Suspect]
  2. CYANOCOBALAMIN [Concomitant]
  3. FUROSEMIDE [Concomitant]
  4. SERTRALINE HCL [Concomitant]
  5. METOPROLOL [Concomitant]
  6. POTASSIUM CHLORIDE [Concomitant]
  7. HCTZ 25MG/TRIAMTERENE [Concomitant]
  8. ASPIRIN [Concomitant]
  9. PHENYTOIN [Concomitant]
  10. ENOXAPARIN SODIUM [Concomitant]
  11. CEFAZOLIN [Concomitant]

REACTIONS (1)
  - RASH [None]
